FAERS Safety Report 15538536 (Version 1)
Quarter: 2018Q4

REPORT INFORMATION
  Report Type: Spontaneous
  Country: JP (occurrence: JP)
  Receive Date: 20181022
  Receipt Date: 20181022
  Transmission Date: 20190205
  Serious: Yes (Hospitalization, Other)
  Sender: FDA-Public Use
  Company Number: JP-ELI_LILLY_AND_COMPANY-JP201810003740

PATIENT
  Age: 57 Year
  Sex: Male
  Weight: 52 kg

DRUGS (8)
  1. ZYPREXA ZYDIS [Suspect]
     Active Substance: OLANZAPINE
     Dosage: 12.5 MG, DAILY
     Route: 048
     Dates: start: 20180812, end: 20180813
  2. MAGMITT [Concomitant]
     Active Substance: MAGNESIUM OXIDE
     Dosage: UNK
     Dates: end: 20180816
  3. ZYPREXA ZYDIS [Suspect]
     Active Substance: OLANZAPINE
     Indication: PRODUCT USED FOR UNKNOWN INDICATION
     Dosage: 20 MG, DAILY
     Route: 048
     Dates: end: 20180811
  4. BROTIZOLAM [Concomitant]
     Active Substance: BROTIZOLAM
     Dosage: UNK
     Dates: end: 20180816
  5. HORIZON [Concomitant]
     Active Substance: DIAZEPAM
     Dosage: UNK, QID
     Route: 041
  6. ZYPREXA [Suspect]
     Active Substance: OLANZAPINE
     Indication: PRODUCT USED FOR UNKNOWN INDICATION
     Dosage: 10 MG, DAILY
     Route: 048
     Dates: end: 20180809
  7. FLUNITRAZEPAM [Concomitant]
     Active Substance: FLUNITRAZEPAM
     Dosage: UNK
  8. SENNOSIDE                          /00571901/ [Concomitant]
     Active Substance: SENNOSIDES A AND B
     Dosage: UNK
     Dates: end: 20180816

REACTIONS (3)
  - Neuroleptic malignant syndrome [Recovering/Resolving]
  - Hepatic function abnormal [Unknown]
  - Aggression [Unknown]

NARRATIVE: CASE EVENT DATE: 20180809
